FAERS Safety Report 20277896 (Version 2)
Quarter: 2022Q1

REPORT INFORMATION
  Report Type: Spontaneous
  Country: US (occurrence: US)
  Receive Date: 20220103
  Receipt Date: 20220216
  Transmission Date: 20220423
  Serious: Yes (Death, Hospitalization, Other)
  Sender: FDA-Public Use
  Company Number: US-SA-SAC20211230001331

PATIENT
  Age: 55 Year
  Sex: Female

DRUGS (6)
  1. DILTIAZEM HYDROCHLORIDE [Suspect]
     Active Substance: DILTIAZEM HYDROCHLORIDE
     Indication: Suicide attempt
     Dosage: INGESTION
     Route: 048
  2. SOTALOL HYDROCHLORIDE [Suspect]
     Active Substance: SOTALOL HYDROCHLORIDE
     Indication: Suicide attempt
     Dosage: INGESTION
     Route: 048
  3. CLOPIDOGREL BISULFATE [Suspect]
     Active Substance: CLOPIDOGREL BISULFATE
     Indication: Suicide attempt
     Dosage: INGESTION
     Route: 048
  4. ANASTROZOLE [Suspect]
     Active Substance: ANASTROZOLE
     Indication: Suicide attempt
     Dosage: INGESTION
     Route: 048
  5. ASPIRIN [Suspect]
     Active Substance: ASPIRIN
     Indication: Suicide attempt
     Dosage: INGESTION
  6. GLIPIZIDE [Suspect]
     Active Substance: GLIPIZIDE
     Indication: Suicide attempt
     Dosage: INGESTION
     Route: 048

REACTIONS (1)
  - Suicide attempt [Fatal]
